FAERS Safety Report 25288331 (Version 1)
Quarter: 2025Q2

REPORT INFORMATION
  Report Type: Spontaneous
  Country: US (occurrence: None)
  Receive Date: 20250509
  Receipt Date: 20250509
  Transmission Date: 20250717
  Serious: Yes (Hospitalization)
  Sender: FDA-CTU
  Company Number: None

PATIENT
  Age: 76 Year
  Sex: Female
  Weight: 61.7 kg

DRUGS (7)
  1. LEXISCAN [Suspect]
     Active Substance: REGADENOSON
     Indication: Cardiac stress test
     Route: 042
     Dates: start: 20250416, end: 20250416
  2. isosorbide mononitrate (IMDUR) 30 MG ER tablet [Concomitant]
  3. nitroGLYcerin (NITROSTAT) 0.4 MG SL tablet [Concomitant]
  4. metoprolol SUCCinate (TOPROL-XL) 25 MG XL tablet [Concomitant]
  5. enalapril (VASOTEC) 10 MG tablet [Concomitant]
  6. atorvastatin (LIPITOR) 40 MG tablet [Concomitant]
  7. clopidogreL (PLAVIX) 75 mg tablet [Concomitant]

REACTIONS (8)
  - Chest discomfort [None]
  - Chest pain [None]
  - Lethargy [None]
  - Blood pressure increased [None]
  - Arrhythmia [None]
  - Hypersensitivity [None]
  - Cardiac failure congestive [None]
  - Anxiety [None]

NARRATIVE: CASE EVENT DATE: 20250416
